FAERS Safety Report 8101404 (Version 3)
Quarter: 2013Q3

REPORT INFORMATION
  Report Type: Spontaneous
  Country: DK (occurrence: DK)
  Receive Date: 20110823
  Receipt Date: 20130806
  Transmission Date: 20140515
  Serious: Yes (Other)
  Sender: FDA-Public Use
  Company Number: DK-AMGEN-DNKSP2011042120

PATIENT
  Age: 83 Year
  Sex: Male
  Weight: 60 kg

DRUGS (14)
  1. PROLIA [Suspect]
     Indication: OSTEOPOROSIS
     Dosage: 60 MG/ML, Q6MO
     Route: 065
     Dates: start: 20110214
  2. STEROID ANTIBACTERIALS [Concomitant]
  3. SIMVASTATIN [Concomitant]
     Indication: HYPERCHOLESTEROLAEMIA
     Dosage: 40 MG, UNK
  4. SELOKEN ZOC/ASA [Concomitant]
  5. ACETYLSALICYLIC ACID [Concomitant]
  6. FURIX [Concomitant]
     Indication: DIURETIC THERAPY
     Dosage: 20 MG, UNK
  7. FENOTEROL HYDROBROMIDE [Concomitant]
  8. FLIXOTIDE [Concomitant]
     Indication: ASTHMA
     Dosage: TWO PUFFS TWICE DAY
  9. SELO-ZOK [Concomitant]
     Indication: BLOOD PRESSURE
     Dosage: 50 MG, UNK
  10. HJERTEMAGNYL                       /00228701/ [Concomitant]
     Indication: THROMBOSIS PROPHYLAXIS
     Dosage: 75 MG, UNK
  11. BERODUAL [Concomitant]
     Indication: CHRONIC OBSTRUCTIVE PULMONARY DISEASE
     Dosage: 100+40 MICROGRAM/CAPSULE
     Dates: start: 2002
  12. PINEX                              /00020001/ [Concomitant]
     Indication: PAIN
     Dosage: 2 TABLETS UP TO 4 TIMES DAILY
  13. DOLOL [Concomitant]
     Indication: PAIN
     Dosage: 1 CAPSULE WHEN NEEDED. MAX 4 TIMES PER DAY
  14. ODRIK [Concomitant]
     Indication: CARDIAC DISORDER
     Dosage: 0.5 MG, UNK

REACTIONS (7)
  - Pain [Unknown]
  - Tenderness [Recovered/Resolved]
  - Oedema peripheral [Unknown]
  - Erythema [Unknown]
  - Joint swelling [Unknown]
  - C-reactive protein increased [Recovered/Resolved]
  - Erysipelas [Unknown]
